FAERS Safety Report 16684051 (Version 3)
Quarter: 2019Q3

REPORT INFORMATION
  Report Type: Report from Study
  Country: US (occurrence: US)
  Receive Date: 20190808
  Receipt Date: 20190905
  Transmission Date: 20191004
  Serious: Yes (Other)
  Sender: FDA-Public Use
  Company Number: US-BAYER-2019-129335

PATIENT
  Age: 55 Year
  Sex: Male

DRUGS (4)
  1. BETASERON [Suspect]
     Active Substance: INTERFERON BETA-1B
     Indication: POST VIRAL FATIGUE SYNDROME
     Dosage: 4 MIU, QOD
     Route: 058
     Dates: start: 201907
  2. BETASERON [Suspect]
     Active Substance: INTERFERON BETA-1B
     Indication: ENTEROVIRUS INFECTION
     Dosage: 2 MIU, QOD
     Route: 058
     Dates: start: 20190708
  3. BETASERON [Suspect]
     Active Substance: INTERFERON BETA-1B
     Indication: ENTEROVIRUS INFECTION
     Dosage: 4 MIU, QOD
     Route: 058
     Dates: start: 20190708
  4. BETASERON [Suspect]
     Active Substance: INTERFERON BETA-1B
     Indication: ENTEROVIRUS INFECTION
     Dosage: 4 MIU, QOD
     Route: 058
     Dates: start: 20190708

REACTIONS (15)
  - Drug effective for unapproved indication [None]
  - Oesophageal disorder [Not Recovered/Not Resolved]
  - Body temperature fluctuation [Recovering/Resolving]
  - Night sweats [Recovering/Resolving]
  - Off label use [Not Recovered/Not Resolved]
  - Product use in unapproved indication [Not Recovered/Not Resolved]
  - Arthralgia [Not Recovered/Not Resolved]
  - Confusional state [Recovering/Resolving]
  - Lymphadenopathy [Not Recovered/Not Resolved]
  - Neuropathy peripheral [Recovering/Resolving]
  - Influenza [Not Recovered/Not Resolved]
  - Chills [Recovering/Resolving]
  - Fatigue [Not Recovered/Not Resolved]
  - Abdominal distension [Not Recovered/Not Resolved]
  - Tremor [Recovering/Resolving]

NARRATIVE: CASE EVENT DATE: 20190705
